FAERS Safety Report 13281804 (Version 1)
Quarter: 2017Q1

REPORT INFORMATION
  Report Type: Spontaneous
  Country: US (occurrence: US)
  Receive Date: 20170301
  Receipt Date: 20170301
  Transmission Date: 20170428
  Serious: No
  Sender: FDA-Public Use
  Company Number: US-PFIZER INC-2017087655

PATIENT
  Age: 61 Year
  Sex: Female

DRUGS (3)
  1. COLYTE /00751601/ [Concomitant]
     Indication: FUNCTIONAL GASTROINTESTINAL DISORDER
     Dosage: 4 ML, CYCLIC (ADD WATER AND DRINK IT OVER AN 8 HOUR PERIOD EVERY 7 TO 10 DAYS)
  2. LEVOXYL [Suspect]
     Active Substance: LEVOTHYROXINE SODIUM
     Indication: HYPOTHYROIDISM
     Dosage: 50 UG, 1X/DAY
     Route: 048
     Dates: start: 2015
  3. LACTULOSE. [Concomitant]
     Active Substance: LACTULOSE
     Indication: FUNCTIONAL GASTROINTESTINAL DISORDER
     Dosage: 15 ML, AS NEEDED

REACTIONS (2)
  - Weight increased [Unknown]
  - Abdominal distension [Recovering/Resolving]
